FAERS Safety Report 6225422-8 (Version None)
Quarter: 2009Q2

REPORT INFORMATION
  Report Type: 
  Country: None (occurrence: None)
  Receive Date: 20090612
  Receipt Date: 20090420
  Transmission Date: 20091009
  Serious: Yes (Hospitalization)
  Sender: FDA-Public Use
  Company Number: US-ABBOTT-09P-163-0568958-00

PATIENT
  Sex: Female
  Weight: 70.37 kg

DRUGS (10)
  1. HUMIRA [Suspect]
     Indication: CROHN'S DISEASE
     Route: 058
     Dates: start: 20080701
  2. INDERAL LA [Concomitant]
     Indication: HYPERTENSION
     Route: 048
  3. COZAAR [Concomitant]
     Indication: HYPERTENSION
     Route: 048
  4. SYNTHROID [Concomitant]
     Indication: DRUG USE FOR UNKNOWN INDICATION
     Route: 048
  5. NEXIUM [Concomitant]
     Indication: GASTROOESOPHAGEAL REFLUX DISEASE
     Route: 048
  6. EFFEXOR XR [Concomitant]
     Indication: DEPRESSION
     Route: 048
  7. NORTRIPTYLINE HCL [Concomitant]
     Indication: DEPRESSION
     Route: 048
  8. XANAX [Concomitant]
     Indication: DRUG USE FOR UNKNOWN INDICATION
     Route: 048
  9. HORMONES NOS [Concomitant]
     Indication: HORMONE REPLACEMENT THERAPY
  10. SLEEPING PILL [Concomitant]
     Indication: INSOMNIA
     Route: 048

REACTIONS (4)
  - ANKLE FRACTURE [None]
  - COUGH [None]
  - INJECTION SITE IRRITATION [None]
  - OROPHARYNGEAL PAIN [None]
